FAERS Safety Report 7591106-7 (Version None)
Quarter: 2011Q3

REPORT INFORMATION
  Report Type: 
  Country: None (occurrence: None)
  Receive Date: 20110705
  Receipt Date: 20110623
  Transmission Date: 20111222
  Serious: Yes (Other)
  Sender: FDA-Public Use
  Company Number: JP-ASTRAZENECA-2011SE22818

PATIENT
  Age: 21859 Day
  Sex: Male

DRUGS (19)
  1. ONOACT [Concomitant]
     Indication: HYPOTENSION
     Dates: start: 20110208, end: 20110426
  2. HANP [Concomitant]
     Indication: PULMONARY OEDEMA
     Dates: start: 20110203, end: 20110429
  3. SEROQUEL [Interacting]
     Route: 050
     Dates: start: 20110329, end: 20110330
  4. SEROQUEL [Interacting]
     Route: 050
  5. OMEPRAZOLE [Concomitant]
     Indication: UPPER GASTROINTESTINAL HAEMORRHAGE
     Dates: start: 20110210
  6. SEROQUEL [Suspect]
     Indication: DELIRIUM
     Route: 050
     Dates: start: 20110307, end: 20110328
  7. SILECE [Interacting]
     Route: 048
  8. PANTOL [Concomitant]
     Dates: start: 20110310, end: 20110426
  9. ZYPREXA [Concomitant]
     Dates: start: 20110403
  10. SEROQUEL [Interacting]
     Route: 050
     Dates: start: 20110331, end: 20110401
  11. CEFOTIAM HYDROCHLORIDE [Concomitant]
     Dates: start: 20110402, end: 20110407
  12. SILECE [Interacting]
     Indication: INSOMNIA
     Route: 048
     Dates: start: 20110402, end: 20110408
  13. FUNGUARD [Concomitant]
     Dates: start: 20110329, end: 20110608
  14. AMBISOME [Concomitant]
     Dates: start: 20110301, end: 20110608
  15. SEROQUEL [Interacting]
     Route: 050
     Dates: start: 20110402, end: 20110408
  16. SILECE [Interacting]
     Route: 048
     Dates: start: 20110418
  17. PRECEDEX [Concomitant]
     Dates: start: 20110124
  18. SEROQUEL [Interacting]
     Route: 050
     Dates: start: 20110418, end: 20110418
  19. NOREPINEPHRINE BITARTRATE [Concomitant]
     Indication: HYPOTENSION
     Dates: start: 20110129, end: 20110426

REACTIONS (3)
  - DRUG INTERACTION [None]
  - HYPOTENSION [None]
  - OFF LABEL USE [None]
